FAERS Safety Report 5284567-X (Version None)
Quarter: 2007Q1

REPORT INFORMATION
  Report Type: 
  Country: None (occurrence: None)
  Receive Date: 20061226
  Receipt Date: 20060925
  Transmission Date: 20070707
  Serious: No
  Sender: FDA-Public Use
  Company Number: 2006PV021964

PATIENT
  Age: 38 Year
  Sex: Female
  Weight: 68.9467 kg

DRUGS (3)
  1. SYMLIN [Suspect]
     Indication: DRUG USE FOR UNKNOWN INDICATION
     Dosage: 15 MCG;BID;SC
     Route: 058
     Dates: start: 20060922
  2. HUMALOG [Concomitant]
  3. HUMALOG [Concomitant]

REACTIONS (2)
  - BLOOD GLUCOSE DECREASED [None]
  - BLOOD GLUCOSE INCREASED [None]
